FAERS Safety Report 4621214-1 (Version None)
Quarter: 2005Q1

REPORT INFORMATION
  Report Type: 
  Country: None (occurrence: None)
  Receive Date: 20050329
  Receipt Date: 20050310
  Transmission Date: 20050727
  Serious: Yes (Hospitalization)
  Sender: FDA-Public Use
  Company Number: DE-RB-1395-2005

PATIENT
  Age: 25 Year
  Sex: Male
  Weight: 80 kg

DRUGS (1)
  1. BUPRENORPHINE HCL [Suspect]
     Dosage: 1 DOSE
     Route: 013
     Dates: start: 20050211, end: 20050211

REACTIONS (4)
  - INTENTIONAL MISUSE [None]
  - MEDICATION ERROR [None]
  - OEDEMA PERIPHERAL [None]
  - PAIN IN EXTREMITY [None]
